FAERS Safety Report 12918752 (Version 1)
Quarter: 2016Q4

REPORT INFORMATION
  Report Type: Report from Study
  Country: US (occurrence: US)
  Receive Date: 20161107
  Receipt Date: 20161107
  Transmission Date: 20170207
  Serious: Yes (Other)
  Sender: FDA-Public Use
  Company Number: US-EMD SERONO-234490K09USA

PATIENT
  Sex: Female
  Weight: 76 kg

DRUGS (2)
  1. REBIF [Suspect]
     Active Substance: INTERFERON BETA-1A
     Indication: MULTIPLE SCLEROSIS
     Route: 058
     Dates: start: 20070611
  2. NORVASC [Concomitant]
     Active Substance: AMLODIPINE BESYLATE
     Indication: HYPERTENSION

REACTIONS (3)
  - Sarcoma [Recovering/Resolving]
  - Hypothyroidism [Unknown]
  - Sarcoma metastatic [Recovering/Resolving]

NARRATIVE: CASE EVENT DATE: 2008
